FAERS Safety Report 11132880 (Version 4)
Quarter: 2015Q3

REPORT INFORMATION
  Report Type: Spontaneous
  Country: US (occurrence: US)
  Receive Date: 20150522
  Receipt Date: 20150916
  Transmission Date: 20151125
  Serious: Yes (Hospitalization)
  Sender: FDA-Public Use
  Company Number: US-PFIZER INC-2015149648

PATIENT
  Age: 78 Year
  Sex: Male
  Weight: 94 kg

DRUGS (18)
  1. HALCION [Concomitant]
     Active Substance: TRIAZOLAM
     Dosage: 0.25 MG, 1X/DAY
     Route: 048
     Dates: start: 20141204
  2. PROLIA [Concomitant]
     Active Substance: DENOSUMAB
     Dosage: 60 MG/ML, CYCLIC (EVERY 6 MONTHS)
     Route: 058
     Dates: start: 20140529
  3. TAMSULOSIN [Concomitant]
     Active Substance: TAMSULOSIN
     Dosage: 0.4 MG, 1X/DAY
     Route: 048
     Dates: start: 20140228
  4. VITAMIN D [Concomitant]
     Active Substance: CHOLECALCIFEROL
     Dosage: UNK
  5. CITRACAL [Concomitant]
     Active Substance: CALCIUM CITRATE
     Dosage: UNK
  6. FLOMAX [Concomitant]
     Active Substance: TAMSULOSIN HYDROCHLORIDE
     Dosage: 0.4 MG, DAILY
     Route: 048
  7. DULOXETINE. [Concomitant]
     Active Substance: DULOXETINE
     Dosage: 60 MG, 2X/DAY
     Route: 048
     Dates: start: 20140228
  8. AMBIEN [Concomitant]
     Active Substance: ZOLPIDEM TARTRATE
     Dosage: 25 MG, DAILY (12.5MG 2 Q. DAY)
     Route: 048
     Dates: start: 20121129
  9. VITAMIN B12 [Concomitant]
     Active Substance: CYANOCOBALAMIN
     Dosage: UNK
  10. FISH OIL [Concomitant]
     Active Substance: FISH OIL
     Dosage: UNK
  11. SUTENT [Suspect]
     Active Substance: SUNITINIB MALATE
     Indication: RENAL CANCER STAGE IV
     Dosage: 50 MG, CYCLE 1 (4 WEEKS ON/2 WEEKS OFF)
     Route: 048
     Dates: start: 20150501
  12. SUTENT [Suspect]
     Active Substance: SUNITINIB MALATE
     Dosage: 37.5 MG, CYCLE 2 (28 DAYS ON/14 DAYS OFF)
     Dates: start: 20150501, end: 20150810
  13. GABAPENTIN. [Concomitant]
     Active Substance: GABAPENTIN
     Dosage: 2100 MG, DAILY (300 MG 7 P.O. Q DAY)
     Route: 048
     Dates: start: 20141129
  14. LISINOPRIL. [Concomitant]
     Active Substance: LISINOPRIL
     Dosage: UNK
  15. ALPRAZOLAM. [Concomitant]
     Active Substance: ALPRAZOLAM
     Dosage: 0.25 MG, AS NEEDED
     Dates: start: 20121129
  16. HALCION [Concomitant]
     Active Substance: TRIAZOLAM
     Dosage: 0.25 MG, 1X/DAY
     Route: 048
     Dates: start: 20141223
  17. VYTORIN [Concomitant]
     Active Substance: EZETIMIBE\SIMVASTATIN
     Dosage: 1 DF, 1X/DAY (10MG-20MG)
     Route: 048
     Dates: start: 20121129
  18. DONEPEZIL. [Concomitant]
     Active Substance: DONEPEZIL
     Dosage: 10 MG, 1X/DAY
     Route: 048
     Dates: start: 20140905

REACTIONS (10)
  - Gait disturbance [Unknown]
  - Blood sodium decreased [Unknown]
  - Diarrhoea [Recovering/Resolving]
  - Urinary tract infection [Unknown]
  - Muscular weakness [Recovering/Resolving]
  - Fall [Unknown]
  - Neuropathy peripheral [Unknown]
  - Decreased appetite [Unknown]
  - Pain in extremity [Not Recovered/Not Resolved]
  - Weight decreased [Unknown]
